FAERS Safety Report 8972480 (Version 1)
Quarter: 2012Q4

REPORT INFORMATION
  Report Type: 
  Country: US (occurrence: US)
  Receive Date: 20121218
  Receipt Date: 20121218
  Transmission Date: 20130627
  Serious: No
  Sender: FDA-Public Use
  Company Number: US-PFIZER INC-2012318580

PATIENT
  Age: 83 Year
  Sex: Female

DRUGS (1)
  1. ADVIL [Suspect]
     Indication: MUSCLE STRAIN
     Dosage: UNK
     Dates: start: 2012

REACTIONS (4)
  - Palpitations [Unknown]
  - Feeling abnormal [Unknown]
  - Insomnia [Unknown]
  - Restlessness [Unknown]
